FAERS Safety Report 10193835 (Version 4)
Quarter: 2016Q1

REPORT INFORMATION
  Report Type: Report from Study
  Country: US (occurrence: US)
  Receive Date: 20140524
  Receipt Date: 20160226
  Transmission Date: 20160525
  Serious: Yes (Other)
  Sender: FDA-Public Use
  Company Number: US-SANOFI-AVENTIS-2013SA044514

PATIENT
  Age: 82 Year
  Sex: Female

DRUGS (4)
  1. LANTUS [Suspect]
     Active Substance: INSULIN GLARGINE
     Indication: DIABETES MELLITUS
     Dosage: DOSE:18 UNIT(S)
  2. HUMALOG [Suspect]
     Active Substance: INSULIN LISPRO
     Dosage: TAKEN FROM-15 YRS AGO
  3. LASIX [Concomitant]
     Active Substance: FUROSEMIDE
  4. LANTUS [Suspect]
     Active Substance: INSULIN GLARGINE
     Indication: DIABETES MELLITUS
     Dosage: TAKEN FROM-15 YRS AGO, FREUENCY-QAM DOSE:20 UNIT(S)
     Route: 065

REACTIONS (5)
  - Cardiac flutter [Unknown]
  - Hypersensitivity [Not Recovered/Not Resolved]
  - Osteopenia [Recovered/Resolved]
  - Dysphonia [Not Recovered/Not Resolved]
  - Hypoglycaemia [Unknown]

NARRATIVE: CASE EVENT DATE: 20130420
